FAERS Safety Report 5794285-7 (Version None)
Quarter: 2008Q2

REPORT INFORMATION
  Report Type: 
  Country: None (occurrence: None)
  Receive Date: 20080625
  Receipt Date: 20080617
  Transmission Date: 20081010
  Serious: Yes (Other)
  Sender: FDA-Public Use
  Company Number: CHPA2008US10106

PATIENT
  Age: 18 Year
  Sex: Male
  Weight: 58 kg

DRUGS (1)
  1. EXCEDRIN (MIGRAINE) [Suspect]
     Indication: PAIN
     Dosage: ORAL
     Route: 048
     Dates: start: 20080617, end: 20080617

REACTIONS (2)
  - FOREIGN BODY TRAUMA [None]
  - MEDICATION ERROR [None]
